FAERS Safety Report 16045766 (Version 1)
Quarter: 2019Q1

REPORT INFORMATION
  Report Type: Spontaneous
  Country: US (occurrence: US)
  Receive Date: 20190307
  Receipt Date: 20190307
  Transmission Date: 20190418
  Serious: No
  Sender: FDA-Public Use
  Company Number: US-PHARMING-PHAUS2019000157

PATIENT

DRUGS (9)
  1. FAMOTIDINE. [Concomitant]
     Active Substance: FAMOTIDINE
  2. TAKHZYRO [Concomitant]
     Active Substance: LANADELUMAB-FLYO
  3. CELECOXIB. [Concomitant]
     Active Substance: CELECOXIB
  4. STERILE WATER [Concomitant]
     Active Substance: WATER
  5. VITAMIN D3 [Concomitant]
     Active Substance: CHOLECALCIFEROL
  6. SINGULAIR [Concomitant]
     Active Substance: MONTELUKAST SODIUM
  7. RUCONEST [Suspect]
     Active Substance: HUMAN C1-ESTERASE INHIBITOR
     Indication: HEREDITARY ANGIOEDEMA
     Dosage: 4200 IU, AS NEEDED
     Route: 042
     Dates: start: 20180622
  8. SODIUM CHLORIDE. [Concomitant]
     Active Substance: SODIUM CHLORIDE
  9. EPINEPHRINE. [Concomitant]
     Active Substance: EPINEPHRINE

REACTIONS (1)
  - Hereditary angioedema [Unknown]
